FAERS Safety Report 7910387-0 (Version None)
Quarter: 2011Q4

REPORT INFORMATION
  Report Type: 
  Country: None (occurrence: None)
  Receive Date: 20111111
  Receipt Date: 20110927
  Transmission Date: 20120403
  Serious: Yes (Hospitalization, Disabling, Other)
  Sender: FDA-Public Use
  Company Number: BR-ROCHE-781056

PATIENT
  Sex: Female

DRUGS (15)
  1. PREDNISONE TAB [Concomitant]
     Indication: RHEUMATOID ARTHRITIS
     Route: 048
  2. ENALAPRIL MALEATE [Concomitant]
  3. ENALAPRIL MALEATE [Concomitant]
  4. TRAMADOL HYDROCHLORIDE AND ACETAMINOPHEN [Suspect]
     Indication: ARTHRALGIA
     Route: 065
     Dates: start: 20110101, end: 20110101
  5. MABTHERA [Suspect]
     Indication: RHEUMATOID ARTHRITIS
     Dosage: DOSE: 100MG/10 ML
     Route: 065
     Dates: start: 20090401, end: 20090401
  6. PREDNISONE TAB [Concomitant]
     Dosage: DOSE INCREASED
     Route: 048
  7. CORTISONE ACETATE [Concomitant]
  8. NEXIUM [Concomitant]
  9. OMEPRAZOLE [Concomitant]
     Dosage: ONE TABLET IN THE MORNING AND ONE TABLET IN THE NIGHT.
  10. FOLIC ACID [Concomitant]
  11. MABTHERA [Suspect]
  12. ACTEMRA [Suspect]
     Indication: RHEUMATOID ARTHRITIS
     Route: 065
  13. METHOTREXATE [Concomitant]
  14. SCAFLAM [Concomitant]
  15. ROXICAM [Concomitant]

REACTIONS (17)
  - ABDOMINAL PAIN UPPER [None]
  - DRUG INEFFECTIVE [None]
  - ARTERIOSCLEROSIS [None]
  - WEIGHT DECREASED [None]
  - GASTRIC DISORDER [None]
  - ARTHRALGIA [None]
  - PERIPHERAL ARTERIAL OCCLUSIVE DISEASE [None]
  - RHEUMATOID ARTHRITIS [None]
  - STOMATITIS [None]
  - DRY MOUTH [None]
  - ARTHRITIS [None]
  - INFLUENZA [None]
  - GAIT DISTURBANCE [None]
  - JOINT INJURY [None]
  - PAIN IN EXTREMITY [None]
  - PAIN [None]
  - DYSPEPSIA [None]
